FAERS Safety Report 9675920 (Version 1)
Quarter: 2013Q4

REPORT INFORMATION
  Report Type: Spontaneous
  Country: CH (occurrence: CH)
  Receive Date: 20131107
  Receipt Date: 20131107
  Transmission Date: 20140711
  Serious: Yes (Hospitalization)
  Sender: FDA-Public Use
  Company Number: CH-MYLANLABS-2013S1024566

PATIENT
  Age: 63 Year
  Sex: Male

DRUGS (4)
  1. RIVAROXABAN [Suspect]
     Indication: INTENTIONAL OVERDOSE
     Dosage: 98 TABLETS
     Route: 048
  2. DIAZEPAM [Suspect]
     Indication: INTENTIONAL OVERDOSE
     Dosage: 90MG
     Route: 048
  3. QUETIAPINE [Suspect]
     Indication: INTENTIONAL OVERDOSE
     Dosage: 1G
     Route: 048
  4. ZOLPIDEM [Suspect]
     Indication: INTENTIONAL OVERDOSE
     Dosage: 50MG
     Route: 048

REACTIONS (5)
  - Coagulopathy [Recovered/Resolved]
  - International normalised ratio increased [Recovered/Resolved]
  - Coagulation time prolonged [Recovering/Resolving]
  - Intentional overdose [Recovering/Resolving]
  - Suicide attempt [Recovering/Resolving]
